FAERS Safety Report 5484982-5 (Version None)
Quarter: 2007Q4

REPORT INFORMATION
  Report Type: 
  Country: None (occurrence: None)
  Receive Date: 20071002
  Receipt Date: 20070918
  Transmission Date: 20080405
  Serious: Yes (Hospitalization)
  Sender: FDA-Public Use
  Company Number: THYM-11540

PATIENT
  Age: 59 Year
  Sex: Male
  Weight: 77.2 kg

DRUGS (8)
  1. THYMOGLOBULIN [Suspect]
     Indication: LIVER TRANSPLANT
     Dosage: 110 MG DAILY IV
     Route: 042
     Dates: start: 20060616, end: 20060616
  2. THYMOGLOBULIN [Suspect]
     Indication: LIVER TRANSPLANT
     Dosage: 55 MG DAILY IV
     Route: 042
     Dates: start: 20060617, end: 20060622
  3. CALCIUM SUPPLEMENT [Concomitant]
  4. CELLCEPT [Concomitant]
  5. NEURONTIN [Concomitant]
  6. BACTRIM DS [Concomitant]
  7. FLORNINEF [Concomitant]
  8. VORICONAZOLE [Concomitant]

REACTIONS (4)
  - BILIARY TRACT DISORDER [None]
  - HEPATITIS [None]
  - HEPATITIS C VIRUS [None]
  - OEDEMA [None]
